FAERS Safety Report 9521556 (Version 1)
Quarter: 2013Q1

REPORT INFORMATION
  Report Type: Spontaneous
  Country: US (occurrence: None)
  Receive Date: 20130305
  Receipt Date: 20130305
  Transmission Date: 20140127
  Serious: Yes (Other)
  Sender: FDA-Public Use
  Company Number: 163-21880-12080040

PATIENT
  Age: 61 Year
  Sex: Male
  Weight: 81.65 kg

DRUGS (17)
  1. REVLIMID (LENALIDOMIDE) (CAPSULES) [Suspect]
     Indication: PLASMA CELL MYELOMA
     Dosage: 15 MG, 21 IN 21 D, PO
     Route: 048
     Dates: start: 20120607
  2. ZYRTEC (CETIRIZINE HYDROCHLORIDE) (UNKNOWN) [Concomitant]
  3. ADVAIR (SERETIDE MITE) (UNKNOWN) [Concomitant]
  4. BACTRIM (BACTRIM) (UNKNOWN) [Concomitant]
  5. BENADRYL (DIPHENHYDRAMINE HYDROCHLORIDE) (UNKNOWN) [Concomitant]
  6. CENTRUM SILVER (CENTRUM SILVER) (UNKNOWN) [Concomitant]
  7. GABAPENTIN (GABAPENTIN) (UNKNOWN) (GABAPENTIN) [Concomitant]
  8. HYDROCORTISONE (HYDROCORTISONE) (CREAM) [Concomitant]
  9. LOSARTAN (LOSARTAN) (UNKNOWN) [Concomitant]
  10. OSCAL (CALCIUM CARBONATE) (UNKNOWN) [Concomitant]
  11. OXYCODONE (OXYCODONE) (UNKNOWN) (OXYCODONE) [Concomitant]
  12. PANTOPRAZOLE [Concomitant]
  13. PEPCID (FAMOTIDINE) (UNKNOWN) [Concomitant]
  14. TYLENOL (PARACETAMOL) (UNKNOWN) [Concomitant]
  15. VALTREX (VALACICLOVIR HYDROCHLORIDE) (UNKNOWN) [Concomitant]
  16. WARFARIN (WARFARIN) (UNKNOWN) [Concomitant]
  17. ZOMETA (ZOLEDRONIC ACID) (UNKNOWN) [Concomitant]

REACTIONS (1)
  - White blood cell count decreased [None]
